FAERS Safety Report 7001231-7 (Version None)
Quarter: 2010Q3

REPORT INFORMATION
  Report Type: 
  Country: None (occurrence: None)
  Receive Date: 20100920
  Receipt Date: 20100708
  Transmission Date: 20110219
  Serious: No
  Sender: FDA-Public Use
  Company Number: US-ASTRAZENECA-2010SE31843

PATIENT
  Age: 40 Year
  Sex: Male

DRUGS (3)
  1. SEROQUEL XR [Suspect]
     Indication: BIPOLAR DISORDER
     Route: 048
     Dates: start: 20100527, end: 20100707
  2. SEROQUEL XR [Suspect]
     Route: 048
     Dates: start: 20100707
  3. NORCO [Concomitant]
     Indication: ARTHRALGIA

REACTIONS (2)
  - MYALGIA [None]
  - PAIN IN EXTREMITY [None]
